FAERS Safety Report 10430188 (Version 1)
Quarter: 2014Q3

REPORT INFORMATION
  Report Type: Spontaneous
  Country: US (occurrence: None)
  Receive Date: 20140903
  Receipt Date: 20140903
  Transmission Date: 20150326
  Serious: No
  Sender: FDA-Public Use
  Company Number: None

PATIENT
  Age: 48 Year
  Sex: Female
  Weight: 65.77 kg

DRUGS (2)
  1. METOPROLOL 37 MG [Suspect]
     Active Substance: METOPROLOL
     Indication: VENTRICULAR EXTRASYSTOLES
     Dosage: 1 AND 1/2 PILLS  ONCE DAILY TAKEN BY MOUTH?DURATION: 1 YEAR 8 MONTHS
     Route: 048
  2. METOPROLOL 37 MG [Suspect]
     Active Substance: METOPROLOL
     Indication: HEART RATE INCREASED
     Dosage: 1 AND 1/2 PILLS  ONCE DAILY TAKEN BY MOUTH?DURATION: 1 YEAR 8 MONTHS
     Route: 048

REACTIONS (3)
  - Weight increased [None]
  - Alopecia [None]
  - Madarosis [None]
